FAERS Safety Report 16946574 (Version 1)
Quarter: 2019Q4

REPORT INFORMATION
  Report Type: Other
  Country: US (occurrence: US)
  Receive Date: 20191022
  Receipt Date: 20191022
  Transmission Date: 20200122
  Serious: Yes (Life-Threatening, Hospitalization, Other)
  Sender: FDA-Public Use
  Company Number: US-C B FLEET CO INC-201910-US-003465

PATIENT
  Age: 20 Year
  Sex: Female

DRUGS (1)
  1. PHENAZOPYRIDINE HYDROCHLORIDE. [Suspect]
     Active Substance: PHENAZOPYRIDINE HYDROCHLORIDE
     Indication: URINARY TRACT INFECTION
     Dosage: TOOK FOR ONE MONTH
     Route: 048

REACTIONS (7)
  - Dyspnoea [Recovered/Resolved]
  - Haemolysis [Recovered/Resolved]
  - Acute kidney injury [Recovered/Resolved]
  - Incorrect product administration duration [None]
  - Methaemoglobinaemia [Recovered/Resolved]
  - Seizure [Recovered/Resolved]
  - Chromaturia [Recovered/Resolved]
